FAERS Safety Report 5345644-8 (Version None)
Quarter: 2007Q2

REPORT INFORMATION
  Report Type: 
  Country: None (occurrence: None)
  Receive Date: 20070605
  Receipt Date: 20060424
  Transmission Date: 20071010
  Serious: No
  Sender: FDA-Public Use
  Company Number: US-ASTRAZENECA-2006UW07314

PATIENT
  Sex: Female
  Weight: 63.5 kg

DRUGS (1)
  1. PRILOSEC [Suspect]
     Indication: EROSIVE OESOPHAGITIS
     Route: 048
     Dates: start: 20060411

REACTIONS (1)
  - MOOD ALTERED [None]
